FAERS Safety Report 7046608-9 (Version None)
Quarter: 2010Q4

REPORT INFORMATION
  Report Type: 
  Country: None (occurrence: None)
  Receive Date: 20101015
  Receipt Date: 20101005
  Transmission Date: 20110411
  Serious: Yes (Hospitalization)
  Sender: FDA-Public Use
  Company Number: US-BIOGENIDEC-2010BI034783

PATIENT
  Age: 31 Year
  Sex: Female
  Weight: 63 kg

DRUGS (1)
  1. TYSABRI [Suspect]
     Indication: MULTIPLE SCLEROSIS
     Route: 042
     Dates: start: 20081001, end: 20100331

REACTIONS (4)
  - BONE PAIN [None]
  - FATIGUE [None]
  - HYPERSENSITIVITY [None]
  - MULTIPLE SCLEROSIS RELAPSE [None]
